FAERS Safety Report 5361245-X (Version None)
Quarter: 2007Q2

REPORT INFORMATION
  Report Type: 
  Country: None (occurrence: None)
  Receive Date: 20070530
  Receipt Date: 20070216
  Transmission Date: 20071010
  Serious: No
  Sender: FDA-Public Use
  Company Number: 2006PV026114

PATIENT
  Age: 70 Year
  Sex: Male

DRUGS (8)
  1. BYETTA [Suspect]
     Indication: DIABETES MELLITUS NON-INSULIN-DEPENDENT
     Dosage: 10 MCG;BID;SC ; 5 MCG;BID;SC ; 10 MCG;BID;SC
     Route: 058
     Dates: start: 20061009, end: 20061108
  2. BYETTA [Suspect]
     Indication: DIABETES MELLITUS NON-INSULIN-DEPENDENT
     Dosage: 10 MCG;BID;SC ; 5 MCG;BID;SC ; 10 MCG;BID;SC
     Route: 058
     Dates: start: 20061109
  3. BYETTA [Suspect]
     Indication: DIABETES MELLITUS NON-INSULIN-DEPENDENT
     Dosage: 10 MCG;BID;SC ; 5 MCG;BID;SC ; 10 MCG;BID;SC
     Route: 058
     Dates: start: 20061201
  4. BYETTA [Suspect]
  5. ACTOS [Concomitant]
  6. GLYBURIDE [Concomitant]
  7. ASPIRIN [Concomitant]
  8. .. [Concomitant]

REACTIONS (4)
  - BLOOD GLUCOSE INCREASED [None]
  - DRUG EFFECT DECREASED [None]
  - INJECTION SITE BRUISING [None]
  - NASOPHARYNGITIS [None]
